FAERS Safety Report 4961898-1 (Version None)
Quarter: 2006Q1

REPORT INFORMATION
  Report Type: 
  Country: None (occurrence: None)
  Receive Date: 20060329
  Receipt Date: 20060323
  Transmission Date: 20060701
  Serious: Yes (Death)
  Sender: FDA-Public Use
  Company Number: MK200512-0326-2

PATIENT
  Age: 23 Year
  Sex: Male

DRUGS (4)
  1. OXYCODONE 5/APAP 500 [Suspect]
  2. COCAINE [Suspect]
  3. BENZODIAZEPINES [Suspect]
  4. CITALOPRAM [Suspect]

REACTIONS (1)
  - SEROTONIN SYNDROME [None]
